FAERS Safety Report 9438290 (Version 1)
Quarter: 2013Q3

REPORT INFORMATION
  Report Type: Spontaneous
  Country: US (occurrence: US)
  Receive Date: 20130802
  Receipt Date: 20130802
  Transmission Date: 20140515
  Serious: Yes (Other)
  Sender: FDA-Public Use
  Company Number: US-BRISTOL-MYERS SQUIBB COMPANY-17132556

PATIENT
  Age: 95 Year
  Sex: Male

DRUGS (3)
  1. COUMADIN [Suspect]
  2. BYSTOLIC [Suspect]
     Dates: start: 2012
  3. ALLEGRA [Suspect]
     Dosage: TABS
     Route: 048
     Dates: start: 20120920

REACTIONS (1)
  - Coagulopathy [Not Recovered/Not Resolved]
